FAERS Safety Report 8492337-4 (Version None)
Quarter: 2012Q3

REPORT INFORMATION
  Report Type: 
  Country: None (occurrence: None)
  Receive Date: 20120706
  Receipt Date: 20120626
  Transmission Date: 20120928
  Serious: Yes (Other)
  Sender: FDA-Public Use
  Company Number: JP-VERTEX PHARMACEUTICALS INC.-AE-2012-009767

PATIENT
  Age: 61 Year
  Sex: Male

DRUGS (13)
  1. ALLOPURINOL [Concomitant]
     Route: 048
     Dates: end: 20120330
  2. TELAVIC (TELAPREVIR) [Suspect]
     Route: 048
     Dates: start: 20120425, end: 20120515
  3. RIBAVIRIN [Concomitant]
     Route: 048
     Dates: start: 20120530
  4. FEBURIC [Concomitant]
     Route: 048
     Dates: start: 20120418
  5. PEGINTERFERON ALFA-2B [Concomitant]
     Indication: HEPATITIS C
     Route: 058
     Dates: start: 20120309
  6. RIBAVIRIN [Concomitant]
     Route: 048
     Dates: start: 20120516, end: 20120529
  7. NITRAZEPAM [Concomitant]
  8. TELAVIC (TELAPREVIR) [Suspect]
     Indication: HEPATITIS C
     Route: 048
     Dates: start: 20120309, end: 20120424
  9. TELAVIC (TELAPREVIR) [Suspect]
     Route: 048
     Dates: start: 20120516, end: 20120601
  10. RIBAVIRIN [Concomitant]
     Indication: HEPATITIS C
     Route: 048
     Dates: start: 20120309, end: 20120417
  11. URSO 250 [Concomitant]
     Route: 048
     Dates: end: 20120330
  12. FEBURIC [Concomitant]
     Route: 048
     Dates: start: 20120330, end: 20120417
  13. RIBAVIRIN [Concomitant]
     Route: 048
     Dates: start: 20120418, end: 20120515

REACTIONS (1)
  - RENAL IMPAIRMENT [None]
